FAERS Safety Report 8263365-9 (Version None)
Quarter: 2012Q2

REPORT INFORMATION
  Report Type: 
  Country: None (occurrence: None)
  Receive Date: 20120405
  Receipt Date: 20120328
  Transmission Date: 20120825
  Serious: Yes (Other)
  Sender: FDA-Public Use
  Company Number: US-ABBOTT-12P-163-0919199-00

PATIENT
  Sex: Female
  Weight: 51.756 kg

DRUGS (6)
  1. VITAMIN D [Concomitant]
     Indication: VITAMIN SUPPLEMENTATION
  2. NORETHRIDIENE [Concomitant]
     Indication: HORMONE REPLACEMENT THERAPY
  3. LUPRON DEPOT [Suspect]
     Indication: ENDOMETRIOSIS
     Dates: start: 20100101, end: 20100101
  4. LUPRON DEPOT [Suspect]
     Indication: ENDOMETRIOSIS
     Dates: start: 20100101
  5. FOLIC ACID [Concomitant]
     Indication: VITAMIN SUPPLEMENTATION
  6. VIVELLE-DOT [Concomitant]
     Indication: OESTROGEN THERAPY

REACTIONS (9)
  - WEIGHT INCREASED [None]
  - HOT FLUSH [None]
  - BACK PAIN [None]
  - OVARIAN DISORDER [None]
  - FEELING ABNORMAL [None]
  - WEIGHT DECREASED [None]
  - VOMITING [None]
  - DRY SKIN [None]
  - ALOPECIA [None]
